FAERS Safety Report 13347325 (Version 3)
Quarter: 2018Q1

REPORT INFORMATION
  Report Type: Report from Study
  Country: US (occurrence: US)
  Receive Date: 20170317
  Receipt Date: 20180111
  Transmission Date: 20180508
  Serious: Yes (Hospitalization)
  Sender: FDA-Public Use
  Company Number: PHEH2017US007887

PATIENT
  Sex: Female
  Weight: 81.63 kg

DRUGS (2)
  1. AFINITOR [Suspect]
     Active Substance: EVEROLIMUS
     Dosage: UNK
     Route: 048
     Dates: start: 20170512
  2. AFINITOR [Suspect]
     Active Substance: EVEROLIMUS
     Indication: ASTROCYTOMA, LOW GRADE
     Dosage: 5 MG,QD
     Route: 048
     Dates: start: 20140601

REACTIONS (5)
  - Blood pressure decreased [Unknown]
  - Psychotic disorder [Unknown]
  - Weight decreased [Unknown]
  - Rash [Unknown]
  - Gastrooesophageal reflux disease [Not Recovered/Not Resolved]
